FAERS Safety Report 13982489 (Version 2)
Quarter: 2017Q4

REPORT INFORMATION
  Report Type: Report from Study
  Country: US (occurrence: US)
  Receive Date: 20170918
  Receipt Date: 20171124
  Transmission Date: 20180321
  Serious: Yes (Hospitalization)
  Sender: FDA-Public Use
  Company Number: PHEH2017US029861

PATIENT
  Sex: Male
  Weight: 75.74 kg

DRUGS (2)
  1. GILENYA [Suspect]
     Active Substance: FINGOLIMOD HYDROCHLORIDE
     Indication: MULTIPLE SCLEROSIS
     Dosage: 0.5 MG, QD
     Route: 048
     Dates: start: 20170907
  2. SOLU-MEDROL [Concomitant]
     Active Substance: METHYLPREDNISOLONE SODIUM SUCCINATE
     Indication: MULTIPLE SCLEROSIS
     Dosage: 1 DF, UNK
     Route: 042

REACTIONS (5)
  - Malaise [Unknown]
  - Fall [Unknown]
  - Uhthoff^s phenomenon [Unknown]
  - Human rhinovirus test positive [Unknown]
  - Pyrexia [Unknown]
